FAERS Safety Report 14972877 (Version 1)
Quarter: 2018Q2

REPORT INFORMATION
  Report Type: Spontaneous
  Country: US (occurrence: US)
  Receive Date: 20180605
  Receipt Date: 20180605
  Transmission Date: 20180711
  Serious: No
  Sender: FDA-Public Use
  Company Number: PHEH2018US021158

PATIENT
  Sex: Male

DRUGS (2)
  1. KETOCONAZOLE. [Suspect]
     Active Substance: KETOCONAZOLE
     Dosage: UNK
     Route: 065
     Dates: start: 20180525
  2. KETOCONAZOLE. [Suspect]
     Active Substance: KETOCONAZOLE
     Indication: RASH
     Dosage: 2 %, BID
     Route: 065
     Dates: start: 20180509

REACTIONS (2)
  - Product quality issue [Unknown]
  - Rash [Unknown]
